FAERS Safety Report 17465822 (Version 5)
Quarter: 2020Q4

REPORT INFORMATION
  Report Type: Report from Study
  Country: RO (occurrence: RO)
  Receive Date: 20200227
  Receipt Date: 20201023
  Transmission Date: 20210113
  Serious: Yes (Congenital Anomaly, Other)
  Sender: FDA-Public Use
  Company Number: RO-AUROBINDO-AUR-APL-2020-010320

PATIENT
  Age: 8 Year
  Sex: Male
  Weight: 3 kg

DRUGS (9)
  1. VIRAMUNE [Suspect]
     Active Substance: NEVIRAPINE
     Indication: PRODUCT USED FOR UNKNOWN INDICATION
     Dosage: 400 MILLIGRAM, ONCE A DAY
     Route: 064
  2. NEVIRAPINE. [Suspect]
     Active Substance: NEVIRAPINE
     Indication: PRODUCT USED FOR UNKNOWN INDICATION
     Dosage: 200 MILLIGRAM, TWO TIMES A DAY (400 MILLIGRAM, ONCE A DAY)
     Route: 064
  3. PHENOXYMETHYLPENICILLIN POTASSIUM [Suspect]
     Active Substance: PENICILLIN V POTASSIUM
     Indication: PRODUCT USED FOR UNKNOWN INDICATION
     Dosage: UNK
     Route: 064
  4. COMBIVIR [Suspect]
     Active Substance: LAMIVUDINE\ZIDOVUDINE
     Indication: PRODUCT USED FOR UNKNOWN INDICATION
     Dosage: 900 MILLIGRAM, ONCE A DAY
     Route: 064
  5. MILK POWDER [Concomitant]
     Indication: PRODUCT USED FOR UNKNOWN INDICATION
     Dosage: UNK
     Route: 065
  6. LAMIVUDINE AND ZIDOVUDINE [Suspect]
     Active Substance: LAMIVUDINE\ZIDOVUDINE
     Dosage: UNK UNK, ONCE A DAY (MATERNAL DOSE)
     Route: 064
  7. COMBIVIR [Suspect]
     Active Substance: LAMIVUDINE\ZIDOVUDINE
     Dosage: TOTAL DAILY DOSE: 1 TAB/CAPS
     Route: 064
  8. LAMIVUDINE AND ZIDOVUDINE [Suspect]
     Active Substance: LAMIVUDINE\ZIDOVUDINE
     Indication: PRODUCT USED FOR UNKNOWN INDICATION
     Dosage: UNK UNK, ONCE A DAY
     Route: 064
  9. COMBIVIR [Suspect]
     Active Substance: LAMIVUDINE\ZIDOVUDINE
     Dosage: MATERNAL DOSE: ZIDOVUDINE (300 MG BID, ORAL) LAMIVUDINE (150 MG BID, ORAL))
     Route: 064

REACTIONS (13)
  - Congenital central nervous system anomaly [Unknown]
  - Premature baby [Unknown]
  - Dandy-Walker syndrome [Unknown]
  - Ataxia [Unknown]
  - Foetal exposure during pregnancy [Recovered/Resolved]
  - Macrocephaly [Unknown]
  - Attention deficit hyperactivity disorder [Unknown]
  - Neurodevelopmental disorder [Unknown]
  - Cyst [Unknown]
  - Cerebral cyst [Unknown]
  - Speech disorder developmental [Unknown]
  - Ventricular enlargement [Unknown]
  - Cerebellar hypoplasia [Unknown]
